FAERS Safety Report 22823637 (Version 4)
Quarter: 2024Q1

REPORT INFORMATION
  Report Type: Spontaneous
  Country: US (occurrence: US)
  Receive Date: 20230815
  Receipt Date: 20240314
  Transmission Date: 20240410
  Serious: Yes (Hospitalization, Other)
  Sender: FDA-Public Use
  Company Number: US-PFIZER INC-PV202300139599

PATIENT
  Age: 78 Year
  Sex: Female
  Weight: 90.703 kg

DRUGS (2)
  1. XELJANZ XR [Suspect]
     Active Substance: TOFACITINIB CITRATE
     Indication: Rheumatoid arthritis
     Dosage: 11 MG, 1X/DAY
     Route: 048
  2. XELJANZ XR [Suspect]
     Active Substance: TOFACITINIB CITRATE
     Indication: Arthritis

REACTIONS (9)
  - Knee arthroplasty [Recovered/Resolved]
  - Joint swelling [Recovered/Resolved]
  - Joint warmth [Recovered/Resolved]
  - Pain in extremity [Recovered/Resolved]
  - Musculoskeletal stiffness [Recovered/Resolved]
  - Dry eye [Not Recovered/Not Resolved]
  - Neck pain [Recovered/Resolved]
  - Hypoaesthesia [Recovered/Resolved]
  - Sensitivity to weather change [Recovered/Resolved]

NARRATIVE: CASE EVENT DATE: 20230801
